FAERS Safety Report 6864006-5 (Version None)
Quarter: 2010Q3

REPORT INFORMATION
  Report Type: 
  Country: None (occurrence: None)
  Receive Date: 20100720
  Receipt Date: 20100707
  Transmission Date: 20110219
  Serious: Yes (Death)
  Sender: FDA-Public Use
  Company Number: KV201000180

PATIENT
  Age: 50 Year
  Sex: Male
  Weight: 110 kg

DRUGS (23)
  1. MORPHINE SULFATE [Suspect]
     Indication: PAIN
     Dosage: 15 MG, TID, ORAL
     Route: 048
     Dates: start: 20080909, end: 20080920
  2. MORPHINE SULFATE [Suspect]
     Indication: PAIN
     Dosage: 60 MG, TID, ORAL
     Route: 048
     Dates: start: 20080909, end: 20080920
  3. MORPHINE SULFATE [Suspect]
     Indication: PAIN
     Dosage: 100 MG, TID, ORAL
     Route: 048
     Dates: start: 20080819, end: 20080909
  4. OXYCODONE HCL [Concomitant]
  5. ATIVAN [Concomitant]
  6. SENNA (SENNA ALEXANDRINA) [Concomitant]
  7. MILK OF MAGNESIA TAB [Concomitant]
  8. COLACE (DOCUSATE SODIUM) [Concomitant]
  9. MAGNESIUM CITRATE (MAGNESIUM CITRATE) [Concomitant]
  10. SODIUM PHOSPHATES [Concomitant]
  11. LORAZEPAM [Concomitant]
  12. HALOPERIDOL [Concomitant]
  13. PROMETHAZINE HYDROCHLORIDE (PROMETHAZINE HYDROCHLORIDE) [Concomitant]
  14. LACTULOSE [Concomitant]
  15. COUMADIN [Concomitant]
  16. MORPHINE SULFATE INJ [Concomitant]
  17. OXYCONTIN (OXYCODONE HYDROCHLORIDE) INJECTION [Concomitant]
  18. RESTORIL [Concomitant]
  19. FENTANYL-100 [Concomitant]
  20. FOLFIRI (FLUOROURACIL, FOLINIC ACID, IRINOTECAN) [Concomitant]
  21. BEVACIZUMAB (BEVACIZUMAB) [Concomitant]
  22. FOLFOX-4 (FLUOROURACIL, FOLINIC ACID, OXALIPLATIN) [Concomitant]
  23. HYDROCHLOROTHIAZIDE [Concomitant]

REACTIONS (28)
  - ABDOMINAL MASS [None]
  - AGITATION [None]
  - ANAEMIA OF CHRONIC DISEASE [None]
  - COLON CANCER METASTATIC [None]
  - CONFUSIONAL STATE [None]
  - CONSTIPATION [None]
  - DEMENTIA [None]
  - DIARRHOEA [None]
  - DRUG TOXICITY [None]
  - DYSPNOEA EXERTIONAL [None]
  - FALL [None]
  - GASTROINTESTINAL SOUNDS ABNORMAL [None]
  - HAEMATOCHEZIA [None]
  - HEPATIC FAILURE [None]
  - HYPOPHAGIA [None]
  - INSOMNIA [None]
  - LETHARGY [None]
  - METASTASES TO PERITONEUM [None]
  - MULTIPLE ALLERGIES [None]
  - MUSCULAR WEAKNESS [None]
  - OEDEMA PERIPHERAL [None]
  - ORTHOPNOEA [None]
  - PAIN [None]
  - PRODUCTIVE COUGH [None]
  - RECTAL TENESMUS [None]
  - SOMNOLENCE [None]
  - UNRESPONSIVE TO STIMULI [None]
  - URINARY HESITATION [None]
